FAERS Safety Report 6903243-8 (Version None)
Quarter: 2010Q3

REPORT INFORMATION
  Report Type: 
  Country: None (occurrence: None)
  Receive Date: 20100803
  Receipt Date: 20080723
  Transmission Date: 20110219
  Serious: No
  Sender: FDA-Public Use
  Company Number: US-PFIZER INC-2008050535

PATIENT
  Sex: Female
  Weight: 71 kg

DRUGS (12)
  1. LYRICA [Suspect]
     Indication: FIBROMYALGIA
     Route: 048
     Dates: start: 20080213, end: 20080601
  2. PEPSIN [Concomitant]
  3. ATENOLOL [Concomitant]
  4. HYDROCHLOROTHIAZIDE [Concomitant]
  5. FOSAMAX [Concomitant]
  6. TYLENOL PM [Concomitant]
  7. ACETYLSALICYLIC ACID SRT [Concomitant]
  8. MULTI-VITAMINS [Concomitant]
  9. ASCORBIC ACID [Concomitant]
  10. FOLIC ACID [Concomitant]
  11. VITAMIN E [Concomitant]
  12. CALCIUM [Concomitant]

REACTIONS (3)
  - FIBROMYALGIA [None]
  - RASH MACULAR [None]
  - SUNBURN [None]
